FAERS Safety Report 8348469-4 (Version None)
Quarter: 2012Q2

REPORT INFORMATION
  Report Type: 
  Country: None (occurrence: None)
  Receive Date: 20120509
  Receipt Date: 20120425
  Transmission Date: 20120825
  Serious: No
  Sender: FDA-Public Use
  Company Number: US-AMGEN-USASP2012023508

PATIENT
  Age: 60 Year
  Sex: Female

DRUGS (2)
  1. ENBREL [Suspect]
     Indication: RHEUMATOID ARTHRITIS
     Dosage: 25 MG, 2 TIMES/WK
     Dates: start: 19980101
  2. TREXALL [Concomitant]
     Dosage: UNK
     Dates: start: 19980101

REACTIONS (6)
  - STAPHYLOCOCCAL INFECTION [None]
  - WHITE BLOOD CELL COUNT DECREASED [None]
  - JOINT STIFFNESS [None]
  - ABDOMINAL DISCOMFORT [None]
  - SJOGREN'S SYNDROME [None]
  - DIARRHOEA [None]
